FAERS Safety Report 5679737-2 (Version None)
Quarter: 2008Q1

REPORT INFORMATION
  Report Type: 
  Country: None (occurrence: None)
  Receive Date: 20080324
  Receipt Date: 20080313
  Transmission Date: 20080703
  Serious: Yes (Other)
  Sender: FDA-Public Use
  Company Number: CHPA2008US04888

PATIENT
  Age: 58 Year
  Sex: Female

DRUGS (1)
  1. BENEFIBER UNKNOWN (NCH)(UNKNOWN) UNKNOWN [Suspect]
     Indication: BOWEL MOVEMENT IRREGULARITY
     Dosage: 2 TSP, QD FOR 3 MONTHS, ORAL
     Route: 048

REACTIONS (4)
  - ABDOMINAL DISTENSION [None]
  - METASTASES TO LIVER [None]
  - RENAL CELL CARCINOMA [None]
  - URETERIC CANCER [None]
